FAERS Safety Report 7811464-5 (Version None)
Quarter: 2011Q4

REPORT INFORMATION
  Report Type: 
  Country: None (occurrence: None)
  Receive Date: 20111013
  Receipt Date: 20111005
  Transmission Date: 20120403
  Serious: Yes (Hospitalization)
  Sender: FDA-Public Use
  Company Number: FR-SANOFI-AVENTIS-2011SA065059

PATIENT
  Age: 58 Year
  Sex: Male

DRUGS (15)
  1. PERINDOPRIL ERBUMINE [Concomitant]
     Route: 048
     Dates: start: 20110524
  2. INSULIN [Concomitant]
  3. GLUCOPHAGE [Concomitant]
  4. ESOMEPRAZOLE SODIUM [Suspect]
     Route: 048
     Dates: start: 20110507, end: 20110713
  5. NOVOMIX [Concomitant]
  6. LYRICA [Concomitant]
  7. ACETAMINOPHEN AND CODEINE PHOSPHATE [Suspect]
     Route: 048
     Dates: start: 20110523, end: 20110617
  8. CEFTRIAXONE [Concomitant]
  9. POLYETHYLENE GLYCOL [Concomitant]
  10. ACETAMINOPHEN [Concomitant]
  11. LASIX [Concomitant]
     Route: 048
     Dates: start: 20110518
  12. LOVENOX [Suspect]
     Route: 058
     Dates: start: 20110601, end: 20110720
  13. ATORVASTATIN CALCIUM [Concomitant]
     Route: 048
     Dates: start: 20110422
  14. AUGMENTIN '125' [Concomitant]
  15. METRONIDAZOLE [Concomitant]

REACTIONS (1)
  - NEUTROPENIA [None]
